FAERS Safety Report 14683494 (Version 1)
Quarter: 2018Q1

REPORT INFORMATION
  Report Type: Spontaneous
  Country: GB (occurrence: US)
  Receive Date: 20180327
  Receipt Date: 20180327
  Transmission Date: 20180509
  Serious: Yes (Life-Threatening, Hospitalization)
  Sender: FDA-Public Use
  Company Number: GB-CIPLA LTD.-2017US04485

PATIENT

DRUGS (20)
  1. CARBOPLATIN. [Suspect]
     Active Substance: CARBOPLATIN
     Indication: BREAST CANCER
     Dosage: 630 MG, CYCLICAL (FORM:UNKNOWN)
     Route: 042
     Dates: start: 20141223, end: 20141223
  2. CARBOPLATIN. [Suspect]
     Active Substance: CARBOPLATIN
     Dosage: 630 MG, CYCLICAL (FORM:UNKNOWN)
     Route: 042
     Dates: start: 20150226, end: 20150226
  3. PARACETAMOL [Concomitant]
     Active Substance: ACETAMINOPHEN
     Indication: PREMEDICATION
     Dosage: UNK
     Route: 065
     Dates: start: 20141223
  4. TAXOTERE [Suspect]
     Active Substance: DOCETAXEL
     Dosage: 137 MG, CYCLICAL
     Route: 042
     Dates: start: 20150226, end: 20150226
  5. CLARITYN                           /00082102/ [Concomitant]
     Dosage: UNK
     Route: 065
     Dates: start: 20150215, end: 20150217
  6. IBUPROFEN. [Concomitant]
     Active Substance: IBUPROFEN
     Dosage: UNK
     Route: 065
  7. PERTUZUMAB. [Suspect]
     Active Substance: PERTUZUMAB
     Dosage: UNK, CYCLICAL
     Route: 042
     Dates: start: 20150226, end: 20150226
  8. TRASTUZUMAB. [Suspect]
     Active Substance: TRASTUZUMAB
     Dosage: UNK, QD
     Route: 042
     Dates: start: 20150226, end: 20150226
  9. DEXAMETHASONE. [Concomitant]
     Active Substance: DEXAMETHASONE
     Indication: PREMEDICATION
     Dosage: UNK
     Route: 065
     Dates: start: 20141223
  10. NEULASTA [Concomitant]
     Active Substance: PEGFILGRASTIM
     Indication: PROPHYLAXIS
     Dosage: UNK
     Route: 065
     Dates: start: 20141226
  11. PALONOSETRON. [Concomitant]
     Active Substance: PALONOSETRON HYDROCHLORIDE
     Indication: PREMEDICATION
     Dosage: UNK
     Route: 065
     Dates: start: 20141223
  12. PERTUZUMAB. [Suspect]
     Active Substance: PERTUZUMAB
     Dosage: 420 MG, CYCLICAL
     Route: 042
     Dates: start: 20150113, end: 20150113
  13. PERTUZUMAB. [Suspect]
     Active Substance: PERTUZUMAB
     Indication: BREAST CANCER
     Dosage: 840 MG, CYCLICAL
     Route: 042
     Dates: start: 20141223, end: 20141223
  14. FAMOTIDINE. [Concomitant]
     Active Substance: FAMOTIDINE
     Indication: PREMEDICATION
     Dosage: UNK
     Route: 065
     Dates: start: 20141223
  15. TAXOTERE [Suspect]
     Active Substance: DOCETAXEL
     Indication: BREAST CANCER
     Dosage: 137 MG, CYCLICAL
     Route: 042
     Dates: start: 20141223, end: 20141223
  16. TRASTUZUMAB. [Suspect]
     Active Substance: TRASTUZUMAB
     Dosage: 447 MG, CYCLICAL
     Route: 042
     Dates: start: 20150113, end: 20150113
  17. DIPHENHYDRAMINE. [Concomitant]
     Active Substance: DIPHENHYDRAMINE
     Indication: PREMEDICATION
     Dosage: UNK
     Route: 065
     Dates: start: 20141223
  18. ONDANSETRON [Concomitant]
     Active Substance: ONDANSETRON
     Dosage: UNK
     Route: 065
     Dates: start: 20141225
  19. TRASTUZUMAB. [Suspect]
     Active Substance: TRASTUZUMAB
     Indication: BREAST CANCER
     Dosage: 597 MG, CYCLICAL
     Route: 042
     Dates: start: 20141223, end: 20141223
  20. CLARITYN                           /00082102/ [Concomitant]
     Dosage: UNK
     Route: 065
     Dates: start: 20151118, end: 20151218

REACTIONS (2)
  - Sepsis [Recovered/Resolved]
  - Febrile neutropenia [Recovered/Resolved with Sequelae]

NARRATIVE: CASE EVENT DATE: 20150306
